FAERS Safety Report 15906317 (Version 1)
Quarter: 2019Q1

REPORT INFORMATION
  Report Type: Report from Study
  Country: ZA (occurrence: ZA)
  Receive Date: 20190204
  Receipt Date: 20190204
  Transmission Date: 20190417
  Serious: Yes (Hospitalization)
  Sender: FDA-Public Use
  Company Number: ZA-SA-2019SA024729

PATIENT
  Age: 65 Year
  Sex: Female

DRUGS (5)
  1. GLICLAZIDE [Concomitant]
     Active Substance: GLICLAZIDE
     Dosage: 120 MG, QD
     Dates: start: 20181112
  2. DISPRIN [Concomitant]
     Active Substance: ASPIRIN
     Dosage: 1 MG, QD
     Dates: start: 20181020
  3. PURICOS [Concomitant]
     Active Substance: ALLOPURINOL
     Dosage: 300 MG, BID
     Dates: start: 20181112
  4. NO STUDY DRUG GIVEN [Suspect]
     Active Substance: UNSPECIFIED INGREDIENT
  5. OPTISULIN (INSULIN GLARGINE) [Suspect]
     Active Substance: INSULIN GLARGINE
     Dosage: 8 U, HS
     Dates: start: 20180927

REACTIONS (1)
  - Myocardial infarction [Not Recovered/Not Resolved]

NARRATIVE: CASE EVENT DATE: 20190121
